FAERS Safety Report 16216282 (Version 12)
Quarter: 2020Q1

REPORT INFORMATION
  Report Type: Report from Study
  Country: CO (occurrence: CO)
  Receive Date: 20190419
  Receipt Date: 20200212
  Transmission Date: 20200409
  Serious: Yes (Hospitalization, Disabling, Other)
  Sender: FDA-Public Use
  Company Number: CO-SA-2019SA015057

PATIENT
  Age: 28 Year
  Sex: Female

DRUGS (1)
  1. ALEMTUZUMAB [Suspect]
     Active Substance: ALEMTUZUMAB
     Indication: MULTIPLE SCLEROSIS
     Dosage: 5 DF (AMPOULES), QD
     Route: 041
     Dates: start: 20190115, end: 20190119

REACTIONS (30)
  - Depression [Not Recovered/Not Resolved]
  - Lower urinary tract symptoms [Unknown]
  - Eosinophil count increased [Recovered/Resolved]
  - Gait disturbance [Not Recovered/Not Resolved]
  - Neck pain [Unknown]
  - Pneumocystis jirovecii pneumonia [Unknown]
  - Oxygen saturation decreased [Unknown]
  - Platelet count increased [Recovered/Resolved]
  - Lung opacity [Unknown]
  - Asthenia [Not Recovered/Not Resolved]
  - Erythema [Recovered/Resolved]
  - Lymphocyte count decreased [Not Recovered/Not Resolved]
  - Tachycardia [Unknown]
  - Gait inability [Not Recovered/Not Resolved]
  - Platelet count increased [Not Recovered/Not Resolved]
  - Cough [Unknown]
  - Thrombocytosis [Unknown]
  - Back pain [Unknown]
  - Chills [Unknown]
  - Vulvovaginal candidiasis [Unknown]
  - Bladder spasm [Unknown]
  - Urine analysis abnormal [Recovered/Resolved]
  - White blood cell count decreased [Recovered/Resolved]
  - C-reactive protein increased [Unknown]
  - Pyrexia [Unknown]
  - Urinary tract infection [Unknown]
  - Crystal urine present [Recovered/Resolved]
  - Drug hypersensitivity [Not Recovered/Not Resolved]
  - Respiratory disorder [Unknown]
  - Pollakiuria [Unknown]

NARRATIVE: CASE EVENT DATE: 201901
